FAERS Safety Report 10377275 (Version 1)
Quarter: 2014Q3

REPORT INFORMATION
  Report Type: Spontaneous
  Country: AR (occurrence: AR)
  Receive Date: 20140812
  Receipt Date: 20140812
  Transmission Date: 20150326
  Serious: Yes (Death, Hospitalization, Other)
  Sender: FDA-Public Use
  Company Number: AR-ALEXION PHARMACEUTICALS INC.-A201403025

PATIENT

DRUGS (1)
  1. SOLIRIS [Suspect]
     Active Substance: ECULIZUMAB
     Indication: PAROXYSMAL NOCTURNAL HAEMOGLOBINURIA
     Dosage: 900 MG, Q2W
     Route: 042
     Dates: start: 20131220, end: 20140801

REACTIONS (9)
  - Sepsis [Fatal]
  - Multi-organ failure [Fatal]
  - Cryptococcus test positive [Unknown]
  - Meningeal disorder [Unknown]
  - Pseudomonas infection [Unknown]
  - Splenomegaly [Unknown]
  - Escherichia infection [Unknown]
  - Platelet count abnormal [Unknown]
  - Splenic infarction [Unknown]

NARRATIVE: CASE EVENT DATE: 20140706
